FAERS Safety Report 8450790 (Version 6)
Quarter: 2016Q4

REPORT INFORMATION
  Report Type: Report from Study
  Country: CN (occurrence: CN)
  Receive Date: 20120309
  Receipt Date: 20161129
  Transmission Date: 20170207
  Serious: Yes (Death, Hospitalization, Other)
  Sender: FDA-Public Use
  Company Number: CN-BRISTOL-MYERS SQUIBB COMPANY-16440752

PATIENT
  Age: 52 Year
  Sex: Male
  Weight: 64 kg

DRUGS (3)
  1. DOCETAXEL. [Suspect]
     Active Substance: DOCETAXEL
     Indication: OROPHARYNGEAL CANCER
     Dosage: 75 MG/M2, UNK
     Route: 065
     Dates: start: 20120221
  2. CISPLATIN. [Suspect]
     Active Substance: CISPLATIN
     Indication: OROPHARYNGEAL CANCER
     Dosage: DRUG INTERRUPTED ON 21FEB12
     Route: 065
     Dates: start: 20120221
  3. CETUXIMAB [Suspect]
     Active Substance: CETUXIMAB
     Indication: OROPHARYNGEAL CANCER
     Dosage: DRUG INTERRUPTED ON 21FEB12
     Route: 041
     Dates: start: 20120221

REACTIONS (4)
  - Thrombocytopenia [Fatal]
  - Leukopenia [Not Recovered/Not Resolved]
  - Pulmonary haemorrhage [Fatal]
  - Neutropenia [Not Recovered/Not Resolved]

NARRATIVE: CASE EVENT DATE: 20120229
